FAERS Safety Report 5098944-3 (Version None)
Quarter: 2006Q3

REPORT INFORMATION
  Report Type: 
  Country: None (occurrence: None)
  Receive Date: 20060907
  Receipt Date: 20060829
  Transmission Date: 20061208
  Serious: Yes (Other)
  Sender: FDA-Public Use
  Company Number: PHEH2006US11135

PATIENT
  Sex: Male

DRUGS (1)
  1. TRILEPTAL [Suspect]
     Indication: TRIGEMINAL NEURALGIA

REACTIONS (2)
  - RENAL SURGERY [None]
  - THERAPEUTIC RESPONSE UNEXPECTED [None]
